FAERS Safety Report 16792097 (Version 2)
Quarter: 2020Q2

REPORT INFORMATION
  Report Type: Report from Study
  Country: US (occurrence: US)
  Receive Date: 20190910
  Receipt Date: 20200610
  Transmission Date: 20200713
  Serious: Yes (Death, Hospitalization)
  Sender: FDA-Public Use
  Company Number: US-EXELIXIS-XL18419022711

PATIENT

DRUGS (2)
  1. NIVOLUMAB [Suspect]
     Active Substance: NIVOLUMAB
     Indication: RENAL CELL CARCINOMA
     Dosage: 240 MILLIGRAM, Q2WK
     Route: 042
     Dates: start: 20181212, end: 20190618
  2. XL184 [Suspect]
     Active Substance: CABOZANTINIB
     Indication: RENAL CELL CARCINOMA
     Dosage: 40 MG, QD
     Route: 048
     Dates: start: 20181212, end: 20190626

REACTIONS (10)
  - Gastrooesophageal reflux disease [Unknown]
  - Abdominal pain [Recovering/Resolving]
  - Death [Fatal]
  - Ascites [Recovering/Resolving]
  - Electrolyte imbalance [Unknown]
  - Constipation [Recovered/Resolved]
  - Vomiting [Unknown]
  - Gastric cancer [Unknown]
  - Abdominal discomfort [Unknown]
  - Nausea [Unknown]

NARRATIVE: CASE EVENT DATE: 20190710
